FAERS Safety Report 7986450-5 (Version None)
Quarter: 2011Q4

REPORT INFORMATION
  Report Type: 
  Country: None (occurrence: None)
  Receive Date: 20111216
  Receipt Date: 20110714
  Transmission Date: 20120403
  Serious: No
  Sender: FDA-Public Use
  Company Number: US-BRISTOL-MYERS SQUIBB COMPANY-15903131

PATIENT
  Age: 36 Year
  Sex: Female
  Weight: 48 kg

DRUGS (1)
  1. ABILIFY [Suspect]
     Indication: OBSESSIVE-COMPULSIVE DISORDER
     Route: 048

REACTIONS (4)
  - AKATHISIA [None]
  - DIZZINESS [None]
  - MUSCLE FATIGUE [None]
  - DROOLING [None]
